FAERS Safety Report 8665439 (Version 2)
Quarter: 2013Q4

REPORT INFORMATION
  Report Type: Spontaneous
  Country: US (occurrence: US)
  Receive Date: 20120716
  Receipt Date: 20131101
  Transmission Date: 20140711
  Serious: No
  Sender: FDA-Public Use
  Company Number: US-009507513-1207USA001366

PATIENT
  Sex: Male

DRUGS (5)
  1. PEGINTRON [Suspect]
     Dosage: 120 MICROGRAM, QW
     Route: 058
  2. RIBAVIRIN (WARRICK) [Suspect]
     Dosage: 200 MG, UNK
  3. PRILOSEC [Concomitant]
     Dosage: 20 MG, UNK
  4. LEXAPRO [Concomitant]
     Dosage: 20 MG, UNK
  5. OMEGA-3 MARINE TRIGLYCERIDES [Concomitant]

REACTIONS (5)
  - Red blood cell count decreased [Unknown]
  - Haematocrit decreased [Unknown]
  - Dyspnoea exertional [Unknown]
  - Arthralgia [Unknown]
  - Haemoglobin decreased [Unknown]
